FAERS Safety Report 26104547 (Version 1)
Quarter: 2025Q4

REPORT INFORMATION
  Report Type: 
  Country: CN (occurrence: CN)
  Receive Date: 20251130
  Receipt Date: 20251130
  Transmission Date: 20260117
  Serious: Yes (Other)
  Sender: JIANGSU HANSOH PHARMACEUTICAL GROUP CO., LTD.
  Company Number: CN-Hansoh-20252190022612

PATIENT
  Age: 77 Year
  Sex: Male
  Weight: 50 kg

DRUGS (2)
  1. MICAFUNGIN SODIUM [Suspect]
     Active Substance: MICAFUNGIN SODIUM
     Indication: Biliary tract infection
     Dosage: 100 MG, QD
     Route: 041
     Dates: start: 20250925, end: 20250930
  2. MEROPENEM [Suspect]
     Active Substance: MEROPENEM
     Indication: Biliary tract infection
     Dosage: 0.5 G, TID
     Route: 041
     Dates: start: 20250925, end: 20250930

REACTIONS (2)
  - Delirium [Recovering/Resolving]
  - Mental disorder [Recovering/Resolving]

NARRATIVE: CASE EVENT DATE: 20250930
